FAERS Safety Report 24034961 (Version 1)
Quarter: 2024Q3

REPORT INFORMATION
  Report Type: Report from Study
  Country: CA (occurrence: CA)
  Receive Date: 20240701
  Receipt Date: 20240701
  Transmission Date: 20241016
  Serious: Yes (Hospitalization)
  Sender: BIOCON
  Company Number: CA-BIOCON BIOLOGICS LIMITED-BBL2024004728

PATIENT

DRUGS (1)
  1. HULIO [Suspect]
     Active Substance: ADALIMUMAB-FKJP
     Indication: Rheumatoid arthritis
     Dosage: 40 MILLIGRAM, Q2W (1 EVERY 2 WEEKS) (SOLUTION)
     Route: 058

REACTIONS (5)
  - Road traffic accident [Unknown]
  - Mobility decreased [Unknown]
  - Emotional distress [Unknown]
  - Influenza [Unknown]
  - Product dose omission issue [Unknown]
